FAERS Safety Report 14751320 (Version 8)
Quarter: 2019Q3

REPORT INFORMATION
  Report Type: Report from Study
  Country: FR (occurrence: FR)
  Receive Date: 20180412
  Receipt Date: 20190717
  Transmission Date: 20191004
  Serious: Yes (Death, Life-Threatening, Hospitalization, Other)
  Sender: FDA-Public Use
  Company Number: FR-AUROBINDO-AUR-APL-2015-10786

PATIENT
  Age: 67 Year
  Sex: Male
  Weight: 86 kg

DRUGS (30)
  1. PRAVASTATIN. [Interacting]
     Active Substance: PRAVASTATIN
     Indication: HYPERCHOLESTEROLAEMIA
  2. CYTARABINE SANDOZ [Suspect]
     Active Substance: CYTARABINE
     Indication: ACUTE MYELOID LEUKAEMIA
     Dosage: 2200 MILLIGRAM, CYCLICAL
     Route: 065
     Dates: start: 20141107, end: 20141112
  3. OXACILLIN [Concomitant]
     Active Substance: OXACILLIN SODIUM
     Dosage: INTRAVENOUS TREATMENT FOR SHORT PERIOD OF TIME
     Route: 042
  4. OLMESARTAN [Suspect]
     Active Substance: OLMESARTAN
     Indication: STAPHYLOCOCCAL INFECTION
     Dosage: 40 MG, UNK
     Route: 065
  5. ZOPHREN [Suspect]
     Active Substance: ONDANSETRON
     Dosage: 8 MILLIGRAM, CYCLICAL
     Route: 042
     Dates: start: 20141107, end: 20141112
  6. ALTEISDUO [Concomitant]
     Active Substance: HYDROCHLOROTHIAZIDE\OLMESARTAN MEDOXOMIL
     Indication: PRODUCT USED FOR UNKNOWN INDICATION
     Dosage: HYDROCHLOROTHIAZIDE 12.5MG/OLMESARTAN 40MG ()
     Dates: start: 2011
  7. FUSIDIC ACID [Interacting]
     Active Substance: FUSIDIC ACID
     Indication: STAPHYLOCOCCAL SEPSIS
     Dosage: 1500 MG, DAILY
     Route: 048
  8. PRAVASTATIN. [Suspect]
     Active Substance: PRAVASTATIN
     Indication: STAPHYLOCOCCAL INFECTION
     Dosage: 40 MG, UNK
     Route: 065
     Dates: start: 2007, end: 20140221
  9. ZOPHREN [Suspect]
     Active Substance: ONDANSETRON
     Indication: PRODUCT USED FOR UNKNOWN INDICATION
     Dosage: 1 DOSAGE FORM, ONCE A DAY
     Route: 042
     Dates: start: 20141107
  10. FLUINDIONE [Concomitant]
     Active Substance: FLUINDIONE
     Indication: PRODUCT USED FOR UNKNOWN INDICATION
     Dosage: 15 MG, UNK
     Route: 065
  11. CORDARONE [Concomitant]
     Active Substance: AMIODARONE HYDROCHLORIDE
     Dosage: 200 MILLIGRAM
     Route: 065
  12. CETRIZINE [Concomitant]
     Active Substance: CETIRIZINE HYDROCHLORIDE
     Indication: PRODUCT USED FOR UNKNOWN INDICATION
     Dosage: UNK
     Route: 065
  13. LEVOFLOXACIN. [Suspect]
     Active Substance: LEVOFLOXACIN
     Dosage: UNK
     Route: 065
     Dates: start: 20140220, end: 20140228
  14. POLARAMINE [Suspect]
     Active Substance: DEXCHLORPHENIRAMINE MALEATE
     Indication: PRODUCT USED FOR UNKNOWN INDICATION
     Dosage: 5 MILLIGRAM, CYCLICAL
     Route: 048
     Dates: start: 20141107, end: 20141113
  15. GENTAMICIN. [Concomitant]
     Active Substance: GENTAMICIN
     Indication: CELLULITIS STAPHYLOCOCCAL
     Dosage: UNK
     Route: 065
  16. CONDROSULF [Concomitant]
     Active Substance: SODIUM CHONDROITIN SULFATE
     Indication: PRODUCT USED FOR UNKNOWN INDICATION
     Dosage: UNK
     Route: 065
  17. POLARAMINE [Suspect]
     Active Substance: DEXCHLORPHENIRAMINE MALEATE
     Dosage: 5 MILLIGRAM, ONCE A DAY
     Route: 048
     Dates: start: 20141107
  18. MITOXANTRONE TEVA [Suspect]
     Active Substance: MITOXANTRONE HYDROCHLORIDE
     Indication: ACUTE MYELOID LEUKAEMIA
     Dosage: 12 MILLIGRAM/SQ. METER, CYCLICAL
     Route: 065
     Dates: start: 20141107, end: 20141108
  19. PREVISCAN [Concomitant]
     Indication: PRODUCT USED FOR UNKNOWN INDICATION
     Dosage: UNK
     Route: 065
  20. FUSIDIC ACID [Interacting]
     Active Substance: FUSIDIC ACID
     Indication: CELLULITIS STAPHYLOCOCCAL
     Dosage: UNK
     Route: 048
     Dates: start: 20140208, end: 20140227
  21. LEVOFLOXACIN. [Suspect]
     Active Substance: LEVOFLOXACIN
     Indication: STAPHYLOCOCCAL INFECTION
     Dosage: UNK
     Route: 048
     Dates: start: 20140208
  22. HYDROCHLOROTHIAZIDE. [Suspect]
     Active Substance: HYDROCHLOROTHIAZIDE
     Indication: STAPHYLOCOCCAL INFECTION
     Dosage: 12.5 MG, UNK
     Route: 065
  23. MYLOTARG [Suspect]
     Active Substance: GEMTUZUMAB OZOGAMICIN
     Indication: ACUTE LEUKAEMIA
     Dosage: 3 MILLIGRAM/SQ. METER, CYCLICAL
     Route: 065
     Dates: start: 20141107, end: 20141113
  24. CIPROFLOXACIN. [Suspect]
     Active Substance: CIPROFLOXACIN
     Indication: CELLULITIS STAPHYLOCOCCAL
     Dosage: 1000 MG, DAILY
     Route: 048
  25. PARACETAMOL [Suspect]
     Active Substance: ACETAMINOPHEN
     Indication: PRODUCT USED FOR UNKNOWN INDICATION
     Dosage: 1000 MG, 3X/DAY, DAYS 1-4-7 ; CYCLICAL
     Route: 048
     Dates: start: 20141107, end: 20141113
  26. OXACILLIN [Concomitant]
     Active Substance: OXACILLIN SODIUM
     Indication: CELLULITIS STAPHYLOCOCCAL
     Dosage: UNK
     Route: 065
  27. GENTAMICIN. [Concomitant]
     Active Substance: GENTAMICIN
     Dosage: INTRAVENOUS TREATMENT FOR SHORT PERIOD OF TIME
     Route: 042
  28. ALLOPURINOL. [Concomitant]
     Active Substance: ALLOPURINOL
     Indication: PRODUCT USED FOR UNKNOWN INDICATION
     Dosage: 200 MG
     Route: 065
     Dates: start: 2012
  29. UVEDOSE [Concomitant]
     Active Substance: CHOLECALCIFEROL
     Indication: PRODUCT USED FOR UNKNOWN INDICATION
     Dosage: UNK
     Route: 065
  30. CORDARONE [Concomitant]
     Active Substance: AMIODARONE HYDROCHLORIDE
     Indication: ENDOTRACHEAL INTUBATION
     Dosage: UNK
     Route: 065
     Dates: start: 2011

REACTIONS (32)
  - Hypotension [Fatal]
  - Liver disorder [Unknown]
  - Renal tubular necrosis [Fatal]
  - Hypernatraemia [Fatal]
  - Multiple organ dysfunction syndrome [Fatal]
  - Jaundice [Fatal]
  - Shock [Fatal]
  - Fatigue [Unknown]
  - Toxicity to various agents [Fatal]
  - Vomiting [Fatal]
  - Dehydration [Unknown]
  - Oliguria [Unknown]
  - Cholestasis [Fatal]
  - Metabolic acidosis [Unknown]
  - Hyporesponsive to stimuli [Unknown]
  - Febrile neutropenia [Recovered/Resolved]
  - Blood bilirubin increased [Fatal]
  - Labelled drug-drug interaction medication error [Unknown]
  - Asthenia [Unknown]
  - Staphylococcus test positive [Recovered/Resolved]
  - Acute kidney injury [Fatal]
  - Hepatocellular injury [Fatal]
  - Gastrointestinal disorder [Unknown]
  - Atrioventricular block [Unknown]
  - Drug interaction [Fatal]
  - Diarrhoea [Fatal]
  - Blood creatinine increased [Unknown]
  - Myalgia [Unknown]
  - Rhabdomyolysis [Fatal]
  - Syncope [Fatal]
  - Blood creatine phosphokinase increased [Unknown]
  - Nausea [Recovered/Resolved]

NARRATIVE: CASE EVENT DATE: 201402
